FAERS Safety Report 15265181 (Version 3)
Quarter: 2018Q3

REPORT INFORMATION
  Report Type: Spontaneous
  Country: US (occurrence: US)
  Receive Date: 20180810
  Receipt Date: 20180910
  Transmission Date: 20181010
  Serious: No
  Sender: FDA-Public Use
  Company Number: US-PFIZER INC-2017425969

PATIENT
  Age: 47 Year
  Sex: Female
  Weight: 158 kg

DRUGS (7)
  1. LYRICA [Suspect]
     Active Substance: PREGABALIN
     Indication: MYELOPATHY
     Dosage: 50 MG, 1X/DAY (1 TAB BY MOUTH AT BEDTIME FOR 1 WEEK)
     Route: 048
     Dates: start: 20170929, end: 2017
  2. LYRICA [Suspect]
     Active Substance: PREGABALIN
     Indication: NEURALGIA
     Dosage: 75 MG, 3X/DAY, (75 MG, 1 CAPSULE BY MOUTH THREE TIMES A DAY)
     Route: 048
  3. LYRICA [Suspect]
     Active Substance: PREGABALIN
     Indication: SPINAL COLUMN STENOSIS
  4. LYRICA [Suspect]
     Active Substance: PREGABALIN
     Indication: CERVICAL RADICULOPATHY
     Dosage: 50 MG, 2X/DAY (1 TAB TWICE A DAY FOR 1 WEEK)
     Route: 048
     Dates: start: 2017, end: 2017
  5. LYRICA [Suspect]
     Active Substance: PREGABALIN
     Indication: SPONDYLITIC MYELOPATHY
     Dosage: 50 MG, 3X/DAY (1 TAB THREE TIMES A DAY)
     Route: 048
     Dates: start: 2017
  6. LYRICA [Suspect]
     Active Substance: PREGABALIN
     Indication: NEURITIS
     Dosage: 100 MG, 3X/DAY
     Route: 048
     Dates: start: 20180801
  7. LYRICA [Suspect]
     Active Substance: PREGABALIN
     Indication: FIBROMYALGIA

REACTIONS (2)
  - Tremor [Unknown]
  - Weight increased [Not Recovered/Not Resolved]
